FAERS Safety Report 17670423 (Version 1)
Quarter: 2020Q2

REPORT INFORMATION
  Report Type: Spontaneous
  Country: US (occurrence: US)
  Receive Date: 20200415
  Receipt Date: 20200415
  Transmission Date: 20200713
  Serious: No
  Sender: FDA-Public Use
  Company Number: US-AMGEN-USASP2020060469

PATIENT
  Sex: Female
  Weight: 44.8 kg

DRUGS (1)
  1. MVASI [Suspect]
     Active Substance: BEVACIZUMAB-AWWB
     Indication: RECTAL CANCER METASTATIC
     Dosage: 266.5 MILLIGRAM
     Route: 065

REACTIONS (1)
  - Incorrect dose administered [Unknown]
